FAERS Safety Report 6945284-0 (Version None)
Quarter: 2010Q3

REPORT INFORMATION
  Report Type: 
  Country: None (occurrence: None)
  Receive Date: 20100827
  Receipt Date: 20100201
  Transmission Date: 20110219
  Serious: Yes (Hospitalization)
  Sender: FDA-Public Use
  Company Number: TR-JNJFOC-20100808058

PATIENT
  Age: 40 Year
  Sex: Female

DRUGS (4)
  1. REMICADE [Suspect]
     Indication: ANKYLOSING SPONDYLITIS
     Route: 042
  2. SALAZOPYRIN [Concomitant]
  3. ISONIAZID [Concomitant]
     Route: 048
  4. ENDOL [Concomitant]
     Route: 048

REACTIONS (1)
  - TUBERCULOSIS [None]
